FAERS Safety Report 16928761 (Version 5)
Quarter: 2020Q1

REPORT INFORMATION
  Report Type: Report from Study
  Country: CL (occurrence: CL)
  Receive Date: 20191017
  Receipt Date: 20200219
  Transmission Date: 20200409
  Serious: Yes (Hospitalization)
  Sender: FDA-Public Use
  Company Number: CL-ROCHE-2430683

PATIENT
  Age: 72 Year
  Sex: Male
  Weight: 53.1 kg

DRUGS (8)
  1. ATEZOLIZUMAB. [Suspect]
     Active Substance: ATEZOLIZUMAB
     Indication: NON-SMALL CELL LUNG CANCER STAGE IV
     Dosage: DATE OF MOST RECENT DOSE OF ATEZOLIZUMAB IV PRIOR TO SAE ONSET.: 10/SEP/2019?START TIME OF MOST RECE
     Route: 041
     Dates: start: 20190820
  2. PREGABALIN. [Concomitant]
     Active Substance: PREGABALIN
     Indication: CHEST PAIN
     Route: 048
     Dates: start: 20190729
  3. RHUPH20 [Suspect]
     Active Substance: HYALURONIDASE (HUMAN RECOMBINANT)
     Indication: NON-SMALL CELL LUNG CANCER STAGE IV
     Route: 058
     Dates: end: 20190730
  4. BERODUAL [Concomitant]
     Active Substance: FENOTEROL HYDROBROMIDE\IPRATROPIUM BROMIDE
     Indication: CHRONIC OBSTRUCTIVE PULMONARY DISEASE
     Dosage: 2 PUFF
     Route: 055
     Dates: start: 20190712
  5. BREXOTIDE [Concomitant]
     Active Substance: FLUTICASONE PROPIONATE\SALMETEROL XINAFOATE
     Indication: CHRONIC OBSTRUCTIVE PULMONARY DISEASE
     Dosage: 2 PUFF
     Route: 055
     Dates: start: 20190729
  6. MORPHINE [Concomitant]
     Active Substance: MORPHINE
     Indication: CHEST PAIN
     Route: 048
     Dates: start: 20190729
  7. ATEZOLIZUMAB. [Suspect]
     Active Substance: ATEZOLIZUMAB
     Indication: NON-SMALL CELL LUNG CANCER STAGE IV
     Route: 058
     Dates: start: 20190701, end: 20190730
  8. SODIUM PICOSULFATE [Concomitant]
     Active Substance: SODIUM PICOSULFATE
     Indication: HYPOKALAEMIA
     Dosage: 20 GTT (DROP)
     Route: 048
     Dates: start: 20191005

REACTIONS (1)
  - Lung abscess [Recovered/Resolved]

NARRATIVE: CASE EVENT DATE: 20190930
